FAERS Safety Report 9096641 (Version 1)
Quarter: 2013Q1

REPORT INFORMATION
  Report Type: Spontaneous
  Country: US (occurrence: US)
  Receive Date: 20130211
  Receipt Date: 20130211
  Transmission Date: 20140127
  Serious: Yes (Other)
  Sender: FDA-Public Use
  Company Number: US-BAYER-2013-015454

PATIENT
  Age: 21 Year
  Sex: Female
  Weight: 59.29 kg

DRUGS (11)
  1. YASMIN [Suspect]
     Indication: CONTRACEPTION
  2. YASMIN [Suspect]
     Indication: ACNE
  3. YASMIN [Suspect]
     Indication: MENSTRUATION IRREGULAR
  4. OCELLA [Suspect]
     Indication: ACNE
  5. ZARAH [Suspect]
  6. TYLENOL (ACETAMINOPHEN) [Concomitant]
  7. ADVIL [IBUPROFEN] [Concomitant]
  8. IMITREX [Concomitant]
     Indication: MIGRAINE
  9. MAXALT [Concomitant]
     Dosage: UNK UNK, PRN
  10. RIBOFLAVIN [Concomitant]
  11. MAGNESIUM CHELATE [Concomitant]

REACTIONS (9)
  - Cerebrovascular accident [None]
  - Mental impairment [None]
  - Vision blurred [None]
  - Disturbance in attention [None]
  - Memory impairment [None]
  - Agnosia [None]
  - Abnormal behaviour [None]
  - Memory impairment [None]
  - Irritability [None]
